FAERS Safety Report 7396506-6 (Version None)
Quarter: 2011Q2

REPORT INFORMATION
  Report Type: 
  Country: None (occurrence: None)
  Receive Date: 20110406
  Receipt Date: 20110331
  Transmission Date: 20111010
  Serious: Yes (Hospitalization, Other)
  Sender: FDA-Public Use
  Company Number: US-ALEXION-A201100429

PATIENT
  Sex: Male

DRUGS (5)
  1. AMIODARONE HCL [Concomitant]
     Dosage: 400 MG, QD
     Route: 048
  2. LISINOPRIL [Concomitant]
     Dosage: 5 MG, QID
     Route: 048
  3. TOPROL-XL [Concomitant]
     Dosage: 200 MG, QD
     Route: 048
  4. SOLIRIS [Suspect]
     Indication: PAROXYSMAL NOCTURNAL HAEMOGLOBINURIA
     Dosage: 600 MG, QW
     Route: 042
     Dates: start: 20110222, end: 20110301
  5. SOLIRIS [Suspect]
     Dosage: 900 MG, Q2W
     Route: 042
     Dates: start: 20110322

REACTIONS (5)
  - NON-CARDIAC CHEST PAIN [None]
  - HEPATITIS ACUTE [None]
  - HYPOTENSION [None]
  - ANAEMIA [None]
  - HEPATOMEGALY [None]
